FAERS Safety Report 6637120-7 (Version None)
Quarter: 2010Q1

REPORT INFORMATION
  Report Type: 
  Country: None (occurrence: None)
  Receive Date: 20100316
  Receipt Date: 20100118
  Transmission Date: 20100710
  Serious: No
  Sender: FDA-Public Use
  Company Number: US-ABBOTT-10P-163-0620621-00

PATIENT
  Sex: Female

DRUGS (5)
  1. TRILIPIX [Suspect]
     Indication: BLOOD TRIGLYCERIDES INCREASED
     Dosage: TOOK SAMPLES PRIOR TO STARTING FILLED PRESCRIPTION ON 21 DEC 2009.
     Route: 048
  2. LIPITOR [Concomitant]
     Indication: DRUG USE FOR UNKNOWN INDICATION
  3. LANTUS [Concomitant]
     Indication: TYPE 1 DIABETES MELLITUS
  4. JANUMET [Concomitant]
     Indication: TYPE 1 DIABETES MELLITUS
  5. GLUCOVANCE [Concomitant]
     Indication: TYPE 1 DIABETES MELLITUS

REACTIONS (1)
  - BLOOD GLUCOSE ABNORMAL [None]
